FAERS Safety Report 4716669-8 (Version None)
Quarter: 2005Q3

REPORT INFORMATION
  Report Type: 
  Country: None (occurrence: None)
  Receive Date: 20050714
  Receipt Date: 20050701
  Transmission Date: 20060218
  Serious: Yes (Hospitalization)
  Sender: FDA-Public Use
  Company Number: 232873K05USA

PATIENT
  Age: 37 Year
  Sex: Male

DRUGS (2)
  1. REBIF [Suspect]
     Indication: MULTIPLE SCLEROSIS
     Dosage: 44 MCG, 3 IN 1 WEEKS, SUBCUTANEOUS
     Route: 058
     Dates: start: 20050405
  2. CELLCEPT [Suspect]
     Dosage: 250 MG, 2 IN 1 DAYS

REACTIONS (7)
  - ALANINE AMINOTRANSFERASE INCREASED [None]
  - ASPARTATE AMINOTRANSFERASE INCREASED [None]
  - LIVER FUNCTION TEST ABNORMAL [None]
  - ORAL SOFT TISSUE DISORDER [None]
  - PLATELET COUNT DECREASED [None]
  - SALIVA ALTERED [None]
  - THROMBOCYTOPENIA [None]
